FAERS Safety Report 9759647 (Version 3)
Quarter: 2015Q3

REPORT INFORMATION
  Report Type: Spontaneous
  Country: US (occurrence: US)
  Receive Date: 20131216
  Receipt Date: 20150805
  Transmission Date: 20151125
  Serious: No
  Sender: FDA-Public Use
  Company Number: US-GILEAD-2010-0028085

PATIENT
  Age: 39 Year
  Sex: Female
  Weight: 47.17 kg

DRUGS (16)
  1. IMODIUM [Concomitant]
     Active Substance: LOPERAMIDE HYDROCHLORIDE
  2. FERROUS SULFATE [Concomitant]
     Active Substance: FERROUS SULFATE\FERROUS SULFATE, DRIED
  3. LETAIRIS [Suspect]
     Active Substance: AMBRISENTAN
     Indication: PULMONARY ARTERIAL HYPERTENSION
     Route: 048
     Dates: start: 20100312
  4. METOPROLOL [Concomitant]
     Active Substance: METOPROLOL
  5. LANOXIN [Concomitant]
     Active Substance: DIGOXIN
  6. CALCIUM CITRATE [Concomitant]
     Active Substance: CALCIUM CITRATE
  7. CALCIUM [Concomitant]
     Active Substance: CALCIUM
  8. IRON [Concomitant]
     Active Substance: IRON
  9. LASIX [Concomitant]
     Active Substance: FUROSEMIDE
  10. PRILOSEC [Concomitant]
     Active Substance: OMEPRAZOLE MAGNESIUM
  11. KEFLEX [Concomitant]
     Active Substance: CEPHALEXIN
  12. OXYGEN. [Concomitant]
     Active Substance: OXYGEN
  13. ALDACTONE [Concomitant]
     Active Substance: SPIRONOLACTONE
  14. STERILE DILUENT [Concomitant]
     Active Substance: WATER
  15. FLOLAN [Concomitant]
     Active Substance: EPOPROSTENOL SODIUM
  16. MULTIVITAMIN [Concomitant]
     Active Substance: VITAMINS

REACTIONS (3)
  - Dyspnoea [Unknown]
  - Heart rate increased [Unknown]
  - Fluid retention [Unknown]
